FAERS Safety Report 17501396 (Version 2)
Quarter: 2020Q4

REPORT INFORMATION
  Report Type: Report from Study
  Country: US (occurrence: US)
  Receive Date: 20200305
  Receipt Date: 20201014
  Transmission Date: 20210113
  Serious: Yes (Hospitalization, Other)
  Sender: FDA-Public Use
  Company Number: US-MYLANLABS-2020M1023373

PATIENT
  Sex: Female

DRUGS (2)
  1. AMBRISENTAN TABLETS [Suspect]
     Active Substance: AMBRISENTAN
     Dosage: 7.5 MILLIGRAM, QD, TAKE 7.5 MG (1 AND 1/2 TABLET ONCE DAILY)
     Route: 048
  2. AMBRISENTAN TABLETS [Suspect]
     Active Substance: AMBRISENTAN
     Indication: PRODUCT USED FOR UNKNOWN INDICATION
     Dosage: TAKE 7.5 MG (1 AND 1/2 TABLET ONCE DAILY)

REACTIONS (4)
  - Sepsis [Unknown]
  - Off label use [Unknown]
  - Wrong technique in product usage process [Unknown]
  - Pulmonary embolism [Unknown]
